FAERS Safety Report 6932600-9 (Version None)
Quarter: 2010Q3

REPORT INFORMATION
  Report Type: 
  Country: None (occurrence: None)
  Receive Date: 20100817
  Receipt Date: 20100806
  Transmission Date: 20110219
  Serious: Yes (Death, Hospitalization)
  Sender: FDA-Public Use
  Company Number: 2010AC000052

PATIENT
  Age: 86 Year
  Sex: Male

DRUGS (22)
  1. DIGOXIN [Suspect]
     Dosage: .125 MG; QD; PO
     Route: 048
     Dates: start: 20060101, end: 20080301
  2. DIGOXIN [Suspect]
     Dosage: 0.125 MG; TIW; PO
     Route: 048
     Dates: start: 20080121
  3. MECLIZINE [Concomitant]
  4. ZOCOR [Concomitant]
  5. PLAVIX [Concomitant]
  6. FUROSEMIDE [Concomitant]
  7. DILTIAZEM [Concomitant]
  8. FLOMAX [Concomitant]
  9. POTASSIUM [Concomitant]
  10. ASPIRIN [Concomitant]
  11. NASONEX [Concomitant]
  12. PRINIVIL [Concomitant]
  13. PROTONIX [Concomitant]
  14. RESTORIL [Concomitant]
  15. RAGLAN [Concomitant]
  16. HYDROCODONE BITARTRATE [Concomitant]
  17. COREG [Concomitant]
  18. ACETAMINOPHEN [Concomitant]
  19. DIFLUCAN [Concomitant]
  20. ALDACTONE [Concomitant]
  21. FLORADIL [Concomitant]
  22. DOPAMINE HCL [Concomitant]

REACTIONS (36)
  - ACIDOSIS [None]
  - AORTIC STENOSIS [None]
  - ARTERIOSCLEROSIS CORONARY ARTERY [None]
  - ATRIAL FIBRILLATION [None]
  - BLOOD CREATININE INCREASED [None]
  - BLOOD UREA INCREASED [None]
  - BRONCHITIS [None]
  - BUNDLE BRANCH BLOCK LEFT [None]
  - BUNDLE BRANCH BLOCK RIGHT [None]
  - CARDIAC ARREST [None]
  - CARDIAC FAILURE CONGESTIVE [None]
  - CARDIOACTIVE DRUG LEVEL INCREASED [None]
  - CARDIOGENIC SHOCK [None]
  - CONDITION AGGRAVATED [None]
  - DILATATION ATRIAL [None]
  - DRUG LEVEL BELOW THERAPEUTIC [None]
  - DYSPHAGIA [None]
  - ECONOMIC PROBLEM [None]
  - HYPONATRAEMIA [None]
  - ISCHAEMIC CARDIOMYOPATHY [None]
  - LEFT VENTRICULAR DYSFUNCTION [None]
  - LEFT VENTRICULAR HYPERTROPHY [None]
  - MALAISE [None]
  - MULTIPLE INJURIES [None]
  - OEDEMA PERIPHERAL [None]
  - OESOPHAGEAL STENOSIS [None]
  - OXYGEN SATURATION DECREASED [None]
  - PARTNER STRESS [None]
  - PNEUMONIA [None]
  - PULMONARY OEDEMA [None]
  - SINUS TACHYCARDIA [None]
  - TREATMENT NONCOMPLIANCE [None]
  - UNRESPONSIVE TO STIMULI [None]
  - VENTRICULAR EXTRASYSTOLES [None]
  - VENTRICULAR FIBRILLATION [None]
  - VENTRICULAR TACHYARRHYTHMIA [None]
